FAERS Safety Report 10314113 (Version 7)
Quarter: 2014Q3

REPORT INFORMATION
  Report Type: Spontaneous
  Country: US (occurrence: US)
  Receive Date: 20140718
  Receipt Date: 20140826
  Transmission Date: 20150326
  Serious: Yes (Hospitalization)
  Sender: FDA-Public Use
  Company Number: US-JNJFOC-20140710723

PATIENT
  Sex: Female

DRUGS (12)
  1. ZESTRIL [Concomitant]
     Active Substance: LISINOPRIL
     Route: 048
  2. TYLENOL [Concomitant]
     Active Substance: ACETAMINOPHEN
     Dosage: PRN
     Route: 048
  3. MOM [Concomitant]
     Active Substance: MAGNESIUM HYDROXIDE
     Dosage: EVERY NIGHT AT BEDTIME.
     Route: 048
  4. THIAMINE [Concomitant]
     Active Substance: THIAMINE
     Route: 048
  5. DULCOLAX [Concomitant]
     Active Substance: BISACODYL OR DOCUSATE SODIUM
     Route: 054
  6. ATORVASTATIN [Concomitant]
     Active Substance: ATORVASTATIN
     Dosage: EVERY NIGHT AT BEDTIME (QHS).
     Route: 048
  7. PEPCID [Concomitant]
     Active Substance: FAMOTIDINE
     Route: 048
  8. COLACE [Concomitant]
     Active Substance: DOCUSATE SODIUM
     Route: 048
  9. ASPIRIN. [Suspect]
     Active Substance: ASPIRIN
     Indication: PRODUCT USED FOR UNKNOWN INDICATION
     Route: 048
  10. FOLIC ACID. [Concomitant]
     Active Substance: FOLIC ACID
     Route: 048
  11. XARELTO [Suspect]
     Active Substance: RIVAROXABAN
     Indication: PRODUCT USED FOR UNKNOWN INDICATION
     Route: 048
     Dates: end: 20140714
  12. DULCOLAX [Concomitant]
     Active Substance: BISACODYL OR DOCUSATE SODIUM
     Route: 048

REACTIONS (3)
  - Blood pressure decreased [Unknown]
  - Upper gastrointestinal haemorrhage [Unknown]
  - International normalised ratio increased [Unknown]

NARRATIVE: CASE EVENT DATE: 20140714
